FAERS Safety Report 11861282 (Version 1)
Quarter: 2015Q4

REPORT INFORMATION
  Report Type: Spontaneous
  Country: US (occurrence: US)
  Receive Date: 20151222
  Receipt Date: 20151222
  Transmission Date: 20160305
  Serious: No
  Sender: FDA-Public Use
  Company Number: US-AVANIR PHARMACEUTICALS, INC.-2012NUEUSA00136

PATIENT
  Age: 39 Year
  Sex: Female

DRUGS (1)
  1. NUEDEXTA [Suspect]
     Active Substance: DEXTROMETHORPHAN HYDROBROMIDE\QUINIDINE SULFATE
     Indication: AFFECT LABILITY
     Dosage: 1 CAP, QHS
     Route: 048
     Dates: start: 20121010, end: 20121107

REACTIONS (5)
  - Dysarthria [Unknown]
  - Muscle twitching [None]
  - Dyskinesia [Recovered/Resolved]
  - Visual impairment [Unknown]
  - Dysphemia [Recovered/Resolved]

NARRATIVE: CASE EVENT DATE: 20121011
